FAERS Safety Report 4597157-9 (Version None)
Quarter: 2005Q1

REPORT INFORMATION
  Report Type: 
  Country: None (occurrence: None)
  Receive Date: 20050302
  Receipt Date: 20050224
  Transmission Date: 20050727
  Serious: Yes (Death)
  Sender: FDA-Public Use
  Company Number: FR-MERCK-0502FRA00083

PATIENT
  Age: 67 Year
  Sex: Female

DRUGS (7)
  1. COZAAR [Suspect]
     Indication: HYPERTENSION
     Route: 048
     Dates: start: 20050215, end: 20050215
  2. COZAAR [Suspect]
     Route: 048
     Dates: start: 20050221, end: 20050224
  3. HYDROCHLOROTHIAZIDE AND TRIAMTERENE [Concomitant]
     Indication: HYPERTENSION
     Route: 048
     Dates: end: 20050224
  4. ALTHIAZIDE AND SPIRONOLACTONE [Concomitant]
     Indication: HYPERTENSION
     Route: 065
  5. FLUINDIONE [Concomitant]
     Indication: BED REST
     Route: 048
     Dates: end: 20050223
  6. NITROGLYCERIN [Concomitant]
     Indication: CORONARY ARTERY DISEASE
     Route: 048
     Dates: end: 20050224
  7. SENNOSIDES [Concomitant]
     Indication: CONSTIPATION
     Route: 048
     Dates: end: 20050224

REACTIONS (7)
  - ANXIETY [None]
  - BLOOD PRESSURE INCREASED [None]
  - DEATH [None]
  - FATIGUE [None]
  - MEDICATION ERROR [None]
  - SOMNOLENCE [None]
  - TREATMENT NONCOMPLIANCE [None]
